FAERS Safety Report 7924727 (Version 2)
Quarter: 2015Q2

REPORT INFORMATION
  Report Type: Spontaneous
  Country: US (occurrence: US)
  Receive Date: 20110502
  Receipt Date: 20150428
  Transmission Date: 20150821
  Serious: Yes (Other)
  Sender: FDA-Public Use
  Company Number: US-ROCHE-747820

PATIENT
  Age: 22 Year
  Sex: Male
  Weight: 95.3 kg

DRUGS (1)
  1. ACCUTANE [Suspect]
     Active Substance: ISOTRETINOIN
     Indication: ACNE
     Route: 065
     Dates: start: 19910101, end: 19930101

REACTIONS (5)
  - Irritable bowel syndrome [Unknown]
  - Colitis ulcerative [Unknown]
  - Intestinal haemorrhage [Unknown]
  - Abdominal pain [Unknown]
  - Rectal haemorrhage [Unknown]

NARRATIVE: CASE EVENT DATE: 199502
